FAERS Safety Report 5194125-3 (Version None)
Quarter: 2006Q4

REPORT INFORMATION
  Report Type: 
  Country: None (occurrence: None)
  Receive Date: 20061220
  Receipt Date: 20061208
  Transmission Date: 20070319
  Serious: Yes (Other)
  Sender: FDA-Public Use
  Company Number: HQWYE868212DEC06

PATIENT
  Sex: 0

DRUGS (1)
  1. EFFEXOR XR [Suspect]

REACTIONS (1)
  - ARTERIOSPASM CORONARY [None]
